FAERS Safety Report 8333988-7 (Version None)
Quarter: 2012Q1

REPORT INFORMATION
  Report Type: 
  Country: None (occurrence: None)
  Receive Date: 20120328
  Receipt Date: 20110124
  Transmission Date: 20120608
  Serious: Yes (Other)
  Sender: FDA-Public Use
  Company Number: PHHY2011US06021

PATIENT
  Age: 81 Year
  Sex: Male

DRUGS (8)
  1. VALTURNA [Suspect]
     Dosage: ALISKIREN 150 MG AND VALSARTAN 160 MG PER DAY, ORAL
     Route: 048
  2. MILK THISTLE [Concomitant]
  3. LOVAZA [Concomitant]
  4. VITAMIN E [Concomitant]
  5. CITRACAL + D (CALCIUM CITRATE, ERGOCALCIFEROL) [Concomitant]
  6. COQ10 (UBIDECARENONE) [Concomitant]
  7. FLAXSEED OIL (LINUM USITATISSIMUM SEED OIL) [Concomitant]
  8. GLUCOSAMINE (GLUCOSAMINE) [Concomitant]

REACTIONS (2)
  - BLOOD PRESSURE FLUCTUATION [None]
  - DIZZINESS [None]
